FAERS Safety Report 5636292-0 (Version None)
Quarter: 2008Q1

REPORT INFORMATION
  Report Type: 
  Country: None (occurrence: None)
  Receive Date: 20080225
  Receipt Date: 20080221
  Transmission Date: 20080703
  Serious: Yes (Hospitalization)
  Sender: FDA-Public Use
  Company Number: FR-WYE-G01111408

PATIENT
  Age: 18 Month

DRUGS (1)
  1. ADVIL [Suspect]
     Dosage: UNKNOWN
     Route: 048
     Dates: start: 20070101, end: 20070101

REACTIONS (1)
  - FASCIITIS [None]
